FAERS Safety Report 24130412 (Version 1)
Quarter: 2024Q3

REPORT INFORMATION
  Report Type: Spontaneous
  Country: FR (occurrence: FR)
  Receive Date: 20240724
  Receipt Date: 20240724
  Transmission Date: 20241016
  Serious: Yes (Hospitalization, Disabling)
  Sender: pharmaAND
  Company Number: FR-AFSSAPS-AN2024000884

PATIENT
  Age: 63 Year
  Sex: Male
  Weight: 70 kg

DRUGS (2)
  1. PEGASYS [Suspect]
     Active Substance: PEGINTERFERON ALFA-2A
     Indication: Myeloproliferative neoplasm
     Dosage: 90 ?G, 1X/WEEK
     Route: 058
     Dates: start: 202207, end: 20231213
  2. ASPIRIN [Concomitant]
     Active Substance: ASPIRIN
     Indication: Product used for unknown indication
     Route: 048

REACTIONS (6)
  - Myoclonus [Recovered/Resolved]
  - Tooth loss [Not Recovered/Not Resolved]
  - Liver function test abnormal [Recovering/Resolving]
  - Erectile dysfunction [Recovering/Resolving]
  - Off label use [Recovered/Resolved]
  - Myeloproliferative neoplasm [Recovered/Resolved]

NARRATIVE: CASE EVENT DATE: 20230101
